FAERS Safety Report 5008243-3 (Version None)
Quarter: 2006Q2

REPORT INFORMATION
  Report Type: 
  Country: None (occurrence: None)
  Receive Date: 20060523
  Receipt Date: 20060512
  Transmission Date: 20061013
  Serious: Yes (Other)
  Sender: FDA-Public Use
  Company Number: PHEH2006US06354

PATIENT
  Age: 68 Year
  Sex: Male

DRUGS (11)
  1. ZOMETA [Suspect]
     Indication: MULTIPLE MYELOMA
     Dosage: UNK, UNK
     Dates: start: 20030101
  2. AREDIA [Suspect]
     Indication: MULTIPLE MYELOMA
     Dates: start: 19950101
  3. BETAPACE [Concomitant]
  4. OXYCODONE [Concomitant]
  5. KLONOPIN [Concomitant]
  6. LEXAPRO [Concomitant]
  7. FUROSEMIDE [Concomitant]
  8. LISINOPRIL [Concomitant]
  9. SPIRONOLACTONE [Concomitant]
  10. LORAZEPAM [Concomitant]
  11. PLAVIX [Concomitant]

REACTIONS (5)
  - BONE DISORDER [None]
  - OSTEONECROSIS [None]
  - PAIN [None]
  - SKIN DISORDER [None]
  - TOOTH EXTRACTION [None]
